FAERS Safety Report 11671893 (Version 3)
Quarter: 2015Q4

REPORT INFORMATION
  Report Type: Spontaneous
  Country: US (occurrence: US)
  Receive Date: 20151028
  Receipt Date: 20151106
  Transmission Date: 20160304
  Serious: Yes (Life-Threatening, Hospitalization)
  Sender: FDA-Public Use
  Company Number: US-ACCORD-034892

PATIENT
  Age: 56 Year
  Sex: Female

DRUGS (1)
  1. AMITRIPTYLINE [Suspect]
     Active Substance: AMITRIPTYLINE
     Indication: PAIN

REACTIONS (8)
  - Seizure [Recovered/Resolved]
  - Off label use [Unknown]
  - Overdose [Unknown]
  - Arrhythmia [Recovered/Resolved]
  - Hypotension [Recovered/Resolved]
  - Suicide attempt [Unknown]
  - Respiratory depression [Recovered/Resolved]
  - Loss of consciousness [Recovered/Resolved]
